FAERS Safety Report 24273526 (Version 1)
Quarter: 2024Q3

REPORT INFORMATION
  Report Type: Spontaneous
  Country: CA (occurrence: CA)
  Receive Date: 20240902
  Receipt Date: 20240902
  Transmission Date: 20241016
  Serious: Yes (Other)
  Sender: PFIZER
  Company Number: CA-PFIZER INC-202300159875

PATIENT
  Age: 29 Year
  Sex: Female
  Weight: 100 kg

DRUGS (3)
  1. RUXIENCE [Suspect]
     Active Substance: RITUXIMAB-PVVR
     Indication: Multiple sclerosis
     Dosage: 1000 MG  IV Q 2 WEEKS X 2 DOSES THEN 1000MG IV 1 6 MONTHS
     Dates: start: 20230808
  2. RUXIENCE [Suspect]
     Active Substance: RITUXIMAB-PVVR
     Dosage: 1000 MG  IV Q 2 WEEKS X 2 DOSES THEN 1000MG IV 1 6 MONTHS (1000MG, DAY 1)
     Dates: start: 20240226
  3. RUXIENCE [Suspect]
     Active Substance: RITUXIMAB-PVVR
     Dosage: 1000 MG, ONE DOSE OF RETREATMENT (1000MG IV Q 2 WEEKS X 2 DOSES THEN 1000MG IV 1 6 MONTHS)
     Dates: start: 20240828

REACTIONS (6)
  - Throat irritation [Recovered/Resolved]
  - Ear pruritus [Recovered/Resolved]
  - Oral pruritus [Recovered/Resolved]
  - Chest pain [Recovered/Resolved]
  - Pruritus [Recovered/Resolved]
  - Off label use [Unknown]

NARRATIVE: CASE EVENT DATE: 20230101
